FAERS Safety Report 5232142-5 (Version None)
Quarter: 2007Q1

REPORT INFORMATION
  Report Type: 
  Country: None (occurrence: None)
  Receive Date: 20070205
  Receipt Date: 20070122
  Transmission Date: 20070707
  Serious: Yes (Hospitalization)
  Sender: FDA-Public Use
  Company Number: 234586

PATIENT
  Age: 57 Year
  Sex: Male
  Weight: 86.2 kg

DRUGS (2)
  1. BEVACIZUMAB (BEVACIZUMAB) PWDR + SOLVENT, INFUSION SOLN, 100MG [Suspect]
     Indication: GLIOBLASTOMA MULTIFORME
     Dosage: 864 UNK, Q2W, INTRAVENOUS
     Route: 042
     Dates: start: 20061211
  2. IRINOTECAN HCL [Suspect]
     Indication: GLIOBLASTOMA MULTIFORME
     Dosage: 262 UNK, Q2W, INTRAVENOUS
     Route: 042
     Dates: start: 20061211

REACTIONS (1)
  - CONVULSION [None]
